FAERS Safety Report 8788224 (Version 1)
Quarter: 2012Q4

REPORT INFORMATION
  Report Type: 
  Country: US (occurrence: US)
  Receive Date: 20120914
  Receipt Date: 20120914
  Transmission Date: 20130627
  Serious: No
  Sender: FDA-Public Use
  Company Number: US-VERTEX PHARMACEUTICAL INC.-AE-2012-002067

PATIENT

DRUGS (7)
  1. INCIVEK [Suspect]
     Indication: HEPATITIS C
     Route: 048
     Dates: start: 20120207, end: 20120501
  2. PEGASYS [Concomitant]
     Indication: HEPATITIS C
     Route: 058
     Dates: start: 20120207
  3. RIBAPAK [Concomitant]
     Indication: HEPATITIS C
     Route: 048
     Dates: start: 20120207
  4. CELEXA [Concomitant]
  5. FISH OIL [Concomitant]
  6. MULTI VITAMIN [Concomitant]
  7. SYNTHROID [Concomitant]

REACTIONS (6)
  - Pyrexia [Unknown]
  - Headache [Unknown]
  - Chills [Unknown]
  - Anaemia [Unknown]
  - Diarrhoea [Unknown]
  - Nausea [Unknown]
